FAERS Safety Report 8094383-1 (Version None)
Quarter: 2012Q1

REPORT INFORMATION
  Report Type: 
  Country: None (occurrence: None)
  Receive Date: 20120130
  Receipt Date: 20120124
  Transmission Date: 20120608
  Serious: Yes (Other)
  Sender: FDA-Public Use
  Company Number: US-BAYER-2011-094011

PATIENT
  Age: 47 Year
  Sex: Female

DRUGS (2)
  1. MIRENA [Suspect]
     Indication: CONTRACEPTION
     Dosage: UNK
     Dates: start: 20091216, end: 20110827
  2. GENERAL ANESTHESIA [Concomitant]
     Dosage: UNK
     Dates: start: 20110827, end: 20110827

REACTIONS (3)
  - DEVICE DISLOCATION [None]
  - MENOMETRORRHAGIA [None]
  - UTERINE LEIOMYOMA [None]
